FAERS Safety Report 20269207 (Version 2)
Quarter: 2022Q1

REPORT INFORMATION
  Report Type: Spontaneous
  Country: FR (occurrence: FR)
  Receive Date: 20220101
  Receipt Date: 20220128
  Transmission Date: 20220423
  Serious: Yes (Hospitalization)
  Sender: FDA-Public Use
  Company Number: None

PATIENT
  Age: 71 Year
  Sex: Male
  Weight: 68 kg

DRUGS (6)
  1. NIVOLUMAB [Suspect]
     Active Substance: NIVOLUMAB
     Indication: Malignant melanoma
     Dosage: CYCLICAL
     Route: 042
     Dates: start: 20210823, end: 20211004
  2. IPILIMUMAB [Suspect]
     Active Substance: IPILIMUMAB
     Indication: Malignant melanoma
     Dosage: CYCLICAL
     Route: 042
     Dates: start: 20210823, end: 20211004
  3. BISOPROLOL [Concomitant]
     Active Substance: BISOPROLOL
     Indication: Product used for unknown indication
     Dosage: 2.5 MILLIGRAM, PER DAY
     Route: 048
  4. WARFARIN SODIUM [Concomitant]
     Active Substance: WARFARIN SODIUM
     Indication: Product used for unknown indication
     Dosage: 10 MILLIGRAM, PER DAY
     Route: 048
  5. TEGRETOL [Concomitant]
     Active Substance: CARBAMAZEPINE
     Indication: Product used for unknown indication
     Dosage: 1 DOSAGE FORM, PER DAY
     Route: 048
     Dates: start: 2013, end: 20211118
  6. LAMICTAL [Concomitant]
     Active Substance: LAMOTRIGINE
     Indication: Product used for unknown indication
     Dosage: 300 MILLIGRAM, PER DAY
     Route: 048
     Dates: start: 2013

REACTIONS (2)
  - Drug eruption [Recovering/Resolving]
  - Mucosal disorder [Recovering/Resolving]

NARRATIVE: CASE EVENT DATE: 20211005
